FAERS Safety Report 12759889 (Version 1)
Quarter: 2016Q3

REPORT INFORMATION
  Report Type: Spontaneous
  Country: GB (occurrence: GB)
  Receive Date: 20160919
  Receipt Date: 20160919
  Transmission Date: 20161109
  Serious: Yes (Other)
  Sender: FDA-Public Use
  Company Number: GB-MYLANLABS-2016M1039083

PATIENT

DRUGS (3)
  1. BUSPIRONE [Concomitant]
     Active Substance: BUSPIRONE HYDROCHLORIDE
     Dosage: UNK
  2. QUETIAPINE. [Suspect]
     Active Substance: QUETIAPINE
     Indication: GENERALISED ANXIETY DISORDER
     Dosage: 200 MG, UNK
     Route: 048
     Dates: start: 20141120, end: 20160720
  3. PAROXETINE. [Concomitant]
     Active Substance: PAROXETINE
     Dosage: UNK

REACTIONS (7)
  - Withdrawal syndrome [Recovered/Resolved with Sequelae]
  - Nasal congestion [Unknown]
  - Histamine level increased [Recovering/Resolving]
  - Sneezing [Unknown]
  - Eye irritation [Unknown]
  - Pruritus [Unknown]
  - Asthma [Unknown]

NARRATIVE: CASE EVENT DATE: 20160718
